FAERS Safety Report 4497808-3 (Version None)
Quarter: 2004Q4

REPORT INFORMATION
  Report Type: 
  Country: None (occurrence: None)
  Receive Date: 20041104
  Receipt Date: 20041020
  Transmission Date: 20050328
  Serious: Yes (Death)
  Sender: FDA-Public Use
  Company Number: 2004IC000864

PATIENT
  Age: 69 Year
  Sex: Male

DRUGS (4)
  1. FLUOROURACIL [Suspect]
     Indication: METASTASES TO LIVER
     Dosage: 250 MG; INTRA-ARTERIAL
     Route: 013
     Dates: start: 20021129, end: 20030521
  2. MITOMYCIN [Suspect]
     Indication: METASTASES TO LIVER
     Dosage: 4 MG; INTRA-ARTERIAL
     Route: 013
     Dates: start: 20021129, end: 20030521
  3. EPIRUBICIN [Suspect]
     Indication: METASTASES TO LIVER
     Dosage: 20 MG; INTRA-ARTERIAL
     Route: 013
     Dates: start: 20021129, end: 20030521
  4. TS 1 (OTERACIL POTASSIUM/TEGAFUR/GIMERACIL) [Suspect]
     Indication: METASTASES TO LIVER
     Dosage: 80 MG; ORAL
     Route: 048
     Dates: start: 20030603, end: 20030811

REACTIONS (5)
  - CHOLANGITIS SCLEROSING [None]
  - EATING DISORDER [None]
  - HEPATIC FAILURE [None]
  - METASTASES TO LUNG [None]
  - OEDEMA PERIPHERAL [None]
